FAERS Safety Report 24677881 (Version 1)
Quarter: 2024Q4

REPORT INFORMATION
  Report Type: Report from Study
  Country: US (occurrence: US)
  Receive Date: 20241129
  Receipt Date: 20241129
  Transmission Date: 20250115
  Serious: Yes (Other)
  Sender: AMGEN
  Company Number: US-AMGEN-USASL2024166687

PATIENT
  Age: 67 Year
  Sex: Male

DRUGS (28)
  1. BLINCYTO [Suspect]
     Active Substance: BLINATUMOMAB
     Indication: Acute leukaemia
     Dosage: UNK, 35 MCG VIAL LYOPHILIZED
     Route: 042
  2. BLINCYTO [Suspect]
     Active Substance: BLINATUMOMAB
     Dosage: 28 MICROGRAM, CONTINUING, 10ML/HR OVER 24 HOURS (35 MCG VIAL) C1D8
     Route: 042
     Dates: start: 20240811, end: 20240812
  3. BLINCYTO [Suspect]
     Active Substance: BLINATUMOMAB
     Dosage: 28 MICROGRAM, CONTINUING, 10ML/HR OVER 24 HOURS (35 MCG VIAL) C1D9
     Route: 042
     Dates: start: 20240812, end: 20240813
  4. BLINCYTO [Suspect]
     Active Substance: BLINATUMOMAB
     Dosage: 28 MICROGRAM, CONTINUING, 10ML/HR OVER 24 HOURS (35 MCG VIAL) C1D10
     Route: 042
     Dates: start: 20240813, end: 20240814
  5. BLINCYTO [Suspect]
     Active Substance: BLINATUMOMAB
     Dosage: 28 MICROGRAM, CONTINUING, 10ML/HR OVER 24 HOURS (35 MCG VIAL) C1D11
     Route: 042
     Dates: start: 20240814, end: 20240816
  6. BLINCYTO [Suspect]
     Active Substance: BLINATUMOMAB
     Dosage: 28 MICROGRAM, CONTINUING, 10ML/HR OVER 24 HOURS (35 MCG VIAL) C1D12
     Route: 042
     Dates: start: 20240816, end: 20240817
  7. BLINCYTO [Suspect]
     Active Substance: BLINATUMOMAB
     Dosage: 28 MICROGRAM, CONTINUING, 10ML/HR OVER 24 HOURS (35 MCG VIAL) C1D13
     Route: 042
     Dates: start: 20240817, end: 20240818
  8. BLINCYTO [Suspect]
     Active Substance: BLINATUMOMAB
     Dosage: 28 MICROGRAM, CONTINUING, 10ML/HR OVER 24 HOURS (35 MCG VIAL) C1D14
     Route: 042
     Dates: start: 20240818, end: 20240819
  9. BLINCYTO [Suspect]
     Active Substance: BLINATUMOMAB
     Dosage: 28 MICROGRAM, CONTINUING, 10ML/HR OVER 24 HOURS (35 MCG VIAL)
     Route: 042
     Dates: start: 20240819, end: 20240820
  10. BLINCYTO [Suspect]
     Active Substance: BLINATUMOMAB
     Dosage: 28 MICROGRAM, CONTINUING, 10ML/HR OVER 24 HOURS (35 MCG VIAL)
     Route: 042
     Dates: start: 20240820, end: 20240821
  11. BLINCYTO [Suspect]
     Active Substance: BLINATUMOMAB
     Dosage: 28 MICROGRAM, CONTINUING, 10ML/HR OVER 24 HOURS (35 MCG VIAL)
     Route: 042
     Dates: start: 20240821, end: 20240822
  12. BLINCYTO [Suspect]
     Active Substance: BLINATUMOMAB
     Dosage: 28 MICROGRAM, CONTINUING, 10ML/HR OVER 24 HOURS (35 MCG VIAL)
     Route: 042
     Dates: start: 20240822, end: 20240823
  13. BLINCYTO [Suspect]
     Active Substance: BLINATUMOMAB
     Dosage: 28 MICROGRAM, CONTINUING 10ML/HR OVER 24 HOURS (35 MCG VIAL) DAY 15
     Route: 040
     Dates: start: 20240924, end: 20240925
  14. BLINCYTO [Suspect]
     Active Substance: BLINATUMOMAB
     Dosage: 28 MICROGRAM, CONTINUING 10ML/HR OVER 24 HOURS (35 MCG VIAL) C2D16
     Route: 040
     Dates: start: 20240925, end: 20240926
  15. BLINCYTO [Suspect]
     Active Substance: BLINATUMOMAB
     Dosage: 28 MICROGRAM, CONTINUING 10ML/HR OVER 24 HOURS (35 MCG VIAL) C2D17
     Route: 040
     Dates: start: 20240926, end: 20240927
  16. BLINCYTO [Suspect]
     Active Substance: BLINATUMOMAB
     Dosage: 28 MICROGRAM, CONTINUING 10ML/HR OVER 24 HOURS (35 MCG VIAL) C2D18
     Route: 040
     Dates: start: 20240927, end: 20240928
  17. BLINCYTO [Suspect]
     Active Substance: BLINATUMOMAB
     Dosage: 28 MICROGRAM, CONTINUING 10ML/HR OVER 24 HOURS
     Route: 040
     Dates: start: 20241107, end: 20241108
  18. BLINCYTO [Suspect]
     Active Substance: BLINATUMOMAB
     Dosage: 28 MICROGRAM, CONTINUING 10ML/HR OVER 24 HOURS
     Route: 040
     Dates: start: 20241116, end: 20241117
  19. BLINCYTO [Suspect]
     Active Substance: BLINATUMOMAB
     Dosage: 28 MICROGRAM, CONTINUING 10ML/HR OVER 24 HOURS C2D10
     Route: 040
     Dates: start: 20241117, end: 20241118
  20. BLINCYTO [Suspect]
     Active Substance: BLINATUMOMAB
     Dosage: 28 MICROGRAM, CONTINUING 10ML/HR OVER 24 HOURS C2 DAY 11
     Route: 040
     Dates: start: 20241118, end: 20241119
  21. BLINCYTO [Suspect]
     Active Substance: BLINATUMOMAB
     Dosage: 28 MICROGRAM, CONTINUING 10ML/HR OVER 24 HOURS C2 DAY 13
     Route: 040
     Dates: start: 20241119, end: 20241120
  22. BLINCYTO [Suspect]
     Active Substance: BLINATUMOMAB
     Dosage: 28 MICROGRAM, CONTINUING 10ML/HR OVER 24 HOURS
     Route: 040
     Dates: start: 20241120, end: 20241121
  23. BLINCYTO [Suspect]
     Active Substance: BLINATUMOMAB
     Dosage: 28 MICROGRAM, CONTINUING 10ML/HR OVER 24 HOURS
     Route: 040
     Dates: start: 20241121, end: 20241122
  24. BLINCYTO [Suspect]
     Active Substance: BLINATUMOMAB
     Dosage: 28 MICROGRAM, CONTINUING 10ML/HR OVER 24 HOURS
     Route: 040
     Dates: start: 20241122, end: 20241123
  25. BLINCYTO [Suspect]
     Active Substance: BLINATUMOMAB
     Dosage: 28 MICROGRAM, CONTINUING 10ML/HR OVER 24 HOURS
     Route: 040
     Dates: start: 20241123, end: 20241124
  26. BLINCYTO [Suspect]
     Active Substance: BLINATUMOMAB
     Dosage: 28 MICROGRAM, CONTINUING 10ML/HR OVER 24 HOURS
     Route: 040
     Dates: start: 20241124, end: 20241125
  27. BLINCYTO [Suspect]
     Active Substance: BLINATUMOMAB
     Dosage: 28 MICROGRAM, CONTINUING 10ML/HR OVER 24 HOURS
     Route: 040
     Dates: start: 20241125, end: 20241126
  28. SODIUM CHLORIDE [Concomitant]
     Active Substance: SODIUM CHLORIDE
     Dosage: UNK

REACTIONS (2)
  - Pancytopenia [Unknown]
  - Leukopenia [Unknown]
